FAERS Safety Report 8436571-8 (Version None)
Quarter: 2012Q2

REPORT INFORMATION
  Report Type: 
  Country: None (occurrence: None)
  Receive Date: 20120614
  Receipt Date: 20120531
  Transmission Date: 20120825
  Serious: Yes (Hospitalization, Other)
  Sender: FDA-Public Use
  Company Number: US-BAYER-2012-057034

PATIENT
  Age: 74 Year
  Sex: Male
  Weight: 127.01 kg

DRUGS (4)
  1. CLOPIDOGREL [Interacting]
     Indication: ANTICOAGULANT THERAPY
     Dates: end: 20120518
  2. RIVAROXABAN [Interacting]
     Indication: ATRIAL FIBRILLATION
     Dosage: 20 MG, QD
     Route: 048
     Dates: start: 20120514, end: 20120518
  3. RIVAROXABAN [Interacting]
     Indication: CEREBROVASCULAR ACCIDENT PROPHYLAXIS
  4. ASPIRIN [Suspect]
     Indication: ANTICOAGULANT THERAPY
     Dosage: 325 MG, QD
     Dates: end: 20120518

REACTIONS (6)
  - HYPOTENSION [None]
  - CARDIAC FIBRILLATION [None]
  - GAIT DISTURBANCE [None]
  - FAECES DISCOLOURED [None]
  - ASTHENIA [None]
  - HAEMOGLOBIN DECREASED [None]
